FAERS Safety Report 6013009-1 (Version None)
Quarter: 2008Q4

REPORT INFORMATION
  Report Type: 
  Country: None (occurrence: None)
  Receive Date: 20081217
  Receipt Date: 20080714
  Transmission Date: 20090506
  Serious: Yes (Hospitalization)
  Sender: FDA-Public Use
  Company Number: 20080185

PATIENT
  Age: 37 Year
  Sex: Female
  Weight: 109 kg

DRUGS (4)
  1. NEOSTIGMINE METHYLSULFATE INJECTION, USP (0034-25) 0.5 MG/ML [Suspect]
     Indication: ANAESTHESIA REVERSAL
     Dosage: 3 MG X 1 INTRAVENOUS BOLUS
     Route: 040
     Dates: start: 20080206, end: 20080206
  2. NEOSTIGMINE METHYLSULFATE INJECTION, USP (0034-10) 0.5 MG//ML [Suspect]
     Indication: DRUG INEFFECTIVE
     Dosage: 2 MG X 1 PER DAYS INTRAVENOUS
     Route: 042
     Dates: start: 20080206, end: 20080206
  3. ROCURONIUM BROMIDE [Concomitant]
  4. SEVOFLURANE [Concomitant]

REACTIONS (1)
  - DRUG INEFFECTIVE [None]
